FAERS Safety Report 10866544 (Version 1)
Quarter: 2015Q1

REPORT INFORMATION
  Report Type: Spontaneous
  Country: US (occurrence: None)
  Receive Date: 20150220
  Receipt Date: 20150220
  Transmission Date: 20150721
  Serious: Yes (Other)
  Sender: FDA-Public Use
  Company Number: None

PATIENT
  Age: 40 Year
  Sex: Male
  Weight: 86.18 kg

DRUGS (1)
  1. ESCITALOPRAM [Suspect]
     Active Substance: ESCITALOPRAM OXALATE
     Indication: ANXIETY
     Dosage: 1
     Route: 048
     Dates: start: 20141101, end: 20150219

REACTIONS (10)
  - Blood pressure increased [None]
  - Drug withdrawal syndrome [None]
  - Headache [None]
  - Gastrointestinal disorder [None]
  - Haematochezia [None]
  - Product substitution issue [None]
  - Dizziness [None]
  - Somnolence [None]
  - Anxiety [None]
  - Panic attack [None]

NARRATIVE: CASE EVENT DATE: 20150219
